FAERS Safety Report 4446419-4 (Version None)
Quarter: 2004Q3

REPORT INFORMATION
  Report Type: 
  Country: None (occurrence: None)
  Receive Date: 20040903
  Receipt Date: 20040607
  Transmission Date: 20050211
  Serious: Yes (Hospitalization)
  Sender: FDA-Public Use
  Company Number: 6009150

PATIENT
  Age: 82 Year
  Sex: Female

DRUGS (6)
  1. LEVOTHYROX 75 (TABLETS) (LEVOTHYROXINE SODIUM) [Suspect]
     Dosage: ORAL
     Route: 048
  2. SOTALOL (TABLETS) [Concomitant]
  3. CIBADREX (TABLETS) [Concomitant]
  4. STABLON (TABLETS) (TIANEPTINE) [Concomitant]
  5. AMLOR (CAPSULES) (AMLODIPINE BESILATE) [Concomitant]
  6. KARDEGIC (POWDER) (ACETYLSALICYLATE LYSINE) [Concomitant]

REACTIONS (5)
  - ASTHENIA [None]
  - DECREASED APPETITE [None]
  - FALL [None]
  - HYPERTHYROIDISM [None]
  - OVERDOSE [None]
